FAERS Safety Report 18261655 (Version 4)
Quarter: 2021Q3

REPORT INFORMATION
  Report Type: Other
  Country: CH (occurrence: CH)
  Receive Date: 20200914
  Receipt Date: 20210917
  Transmission Date: 20211014
  Serious: Yes (Other)
  Sender: FDA-Public Use
  Company Number: CH-ASTELLAS-2020US030859

PATIENT
  Age: 16 Year
  Sex: Female
  Weight: 48 kg

DRUGS (47)
  1. MODIGRAF [Suspect]
     Active Substance: TACROLIMUS
     Indication: RENAL TRANSPLANT
     Dosage: 5 MG, ONCE DAILY (0.1 MG/KG/D) IN TWO DAILY DOSES
     Route: 050
     Dates: start: 20200722, end: 20200731
  2. MODIGRAF [Suspect]
     Active Substance: TACROLIMUS
     Dosage: 14 MG, ONCE DAILY (DAY 20)
     Route: 048
     Dates: start: 20200810, end: 20200810
  3. MODIGRAF [Suspect]
     Active Substance: TACROLIMUS
     Dosage: 8 MG, ONCE DAILY (DAY 27)
     Route: 048
     Dates: start: 20200817, end: 20200817
  4. CELLCEPT [Concomitant]
     Active Substance: MYCOPHENOLATE MOFETIL\MYCOPHENOLATE MOFETIL HYDROCHLORIDE
     Indication: RENAL TRANSPLANT
     Route: 042
     Dates: start: 202007
  5. AMOXICILLIN. [Concomitant]
     Active Substance: AMOXICILLIN
     Indication: PRODUCT USED FOR UNKNOWN INDICATION
     Dosage: UNK UNK, UNKNOWN FREQ.
     Route: 065
  6. SIMULECT [Concomitant]
     Active Substance: BASILIXIMAB
     Indication: RENAL TRANSPLANT
     Dosage: UNK UNK, UNKNOWN FREQ.
     Route: 042
  7. LABETALOL [Concomitant]
     Active Substance: LABETALOL\LABETALOL HYDROCHLORIDE
     Indication: PRODUCT USED FOR UNKNOWN INDICATION
     Dosage: UNK UNK, UNKNOWN FREQ.
     Route: 048
  8. MOVICOL [Concomitant]
     Active Substance: POLYETHYLENE GLYCOL 3350\POTASSIUM CHLORIDE\SODIUM BICARBONATE\SODIUM CHLORIDE
     Indication: PRODUCT USED FOR UNKNOWN INDICATION
     Dosage: UNK UNK, UNKNOWN FREQ.
     Route: 065
  9. MODIGRAF [Suspect]
     Active Substance: TACROLIMUS
     Dosage: 10 MG, ONCE DAILY (DAY 18)
     Route: 048
     Dates: start: 20200808, end: 20200808
  10. MODIGRAF [Suspect]
     Active Substance: TACROLIMUS
     Dosage: 14 MG, ONCE DAILY (DAY 22)
     Route: 048
     Dates: start: 20200812, end: 20200812
  11. MODIGRAF [Suspect]
     Active Substance: TACROLIMUS
     Dosage: 9 MG, ONCE DAILY (DAY 26)
     Route: 048
     Dates: start: 20200816, end: 20200816
  12. PREDNISONE. [Concomitant]
     Active Substance: PREDNISONE
     Dosage: UNK UNK, UNKNOWN FREQ.
     Route: 048
     Dates: start: 20200811
  13. GANCICLOVIR. [Concomitant]
     Active Substance: GANCICLOVIR
     Dosage: UNK UNK, UNKNOWN FREQ.
     Route: 042
     Dates: start: 20200811
  14. MINOXIDIL. [Concomitant]
     Active Substance: MINOXIDIL
     Indication: PRODUCT USED FOR UNKNOWN INDICATION
     Dosage: UNK UNK, UNKNOWN FREQ.
     Route: 065
  15. DEXMEDETOMIDINE. [Concomitant]
     Active Substance: DEXMEDETOMIDINE
     Indication: PRODUCT USED FOR UNKNOWN INDICATION
     Dosage: UNK UNK, AS NEEDED
     Route: 065
  16. OMEPRAZOLE. [Concomitant]
     Active Substance: OMEPRAZOLE
     Indication: PRODUCT USED FOR UNKNOWN INDICATION
     Dosage: UNK UNK, UNKNOWN FREQ.
     Route: 048
  17. MODIGRAF [Suspect]
     Active Substance: TACROLIMUS
     Dosage: 10 MG, ONCE DAILY (DAY 16)
     Route: 048
     Dates: start: 20200806, end: 20200806
  18. METHYLPREDNISOLONE. [Concomitant]
     Active Substance: METHYLPREDNISOLONE
     Indication: RENAL TRANSPLANT
     Dosage: 500 MG, UNKNOWN FREQ. (DURING SURGERY)
     Route: 042
     Dates: start: 202007
  19. METHYLPREDNISOLONE. [Concomitant]
     Active Substance: METHYLPREDNISOLONE
     Indication: LIVER TRANSPLANT
     Dosage: 250 MG, UNKNOWN FREQ. (DAY 1 POSTOPERATIVE)
     Route: 042
     Dates: start: 20200722
  20. LEVETIRACETAM. [Concomitant]
     Active Substance: LEVETIRACETAM
     Indication: PRODUCT USED FOR UNKNOWN INDICATION
     Dosage: UNK UNK, UNKNOWN FREQ.
     Route: 048
  21. ACETAMINOPHEN. [Concomitant]
     Active Substance: ACETAMINOPHEN
     Indication: PRODUCT USED FOR UNKNOWN INDICATION
     Dosage: UNK UNK, UNKNOWN FREQ.
     Route: 042
  22. MODIGRAF [Suspect]
     Active Substance: TACROLIMUS
     Indication: LIVER TRANSPLANT
     Dosage: 4.4 MG, ONCE DAILY (DAY 11)
     Route: 048
     Dates: start: 20200801, end: 20200801
  23. MODIGRAF [Suspect]
     Active Substance: TACROLIMUS
     Dosage: 10 MG, ONCE DAILY (DAY 24)
     Route: 048
     Dates: start: 20200814, end: 20200814
  24. METHYLPREDNISOLONE. [Concomitant]
     Active Substance: METHYLPREDNISOLONE
     Dosage: 125 MG, UNKNOWN FREQ. (DAY 2 POSTOPERATIVE)
     Route: 042
     Dates: start: 20200723
  25. ATOVAQUONE. [Concomitant]
     Active Substance: ATOVAQUONE
     Indication: PRODUCT USED FOR UNKNOWN INDICATION
     Dosage: UNK UNK, UNKNOWN FREQ.
     Route: 065
     Dates: start: 20200811
  26. MOXONIDINE [Concomitant]
     Active Substance: MOXONIDINE
     Indication: PRODUCT USED FOR UNKNOWN INDICATION
     Dosage: UNK UNK, UNKNOWN FREQ.
     Route: 065
  27. ONDANSETRON [Concomitant]
     Active Substance: ONDANSETRON
     Indication: PRODUCT USED FOR UNKNOWN INDICATION
     Dosage: UNK UNK, AS NEEDED
     Route: 065
  28. METHYLPREDNISOLONE. [Concomitant]
     Active Substance: METHYLPREDNISOLONE
     Dosage: 600 MG, ONCE DAILY (DAY 20)
     Route: 042
     Dates: start: 20200808, end: 20200811
  29. GANCICLOVIR. [Concomitant]
     Active Substance: GANCICLOVIR
     Indication: PRODUCT USED FOR UNKNOWN INDICATION
     Dosage: UNK UNK, UNKNOWN FREQ.
     Route: 042
     Dates: start: 202007, end: 20200811
  30. BACTRIM [Concomitant]
     Active Substance: SULFAMETHOXAZOLE\TRIMETHOPRIM
     Indication: PRODUCT USED FOR UNKNOWN INDICATION
     Dosage: UNK UNK, UNKNOWN FREQ.
     Route: 048
     Dates: end: 20200811
  31. METOCLOPRAMIDE. [Concomitant]
     Active Substance: METOCLOPRAMIDE
     Indication: PRODUCT USED FOR UNKNOWN INDICATION
     Dosage: UNK UNK, UNKNOWN FREQ.
     Route: 065
  32. SIMULECT [Concomitant]
     Active Substance: BASILIXIMAB
     Indication: LIVER TRANSPLANT
  33. MODIGRAF [Suspect]
     Active Substance: TACROLIMUS
     Dosage: 9 MG, ONCE DAILY (DAY 17)
     Route: 048
     Dates: start: 20200807, end: 20200807
  34. MODIGRAF [Suspect]
     Active Substance: TACROLIMUS
     Dosage: 10 MG, ONCE DAILY (DAY 25)
     Route: 048
     Dates: start: 20200815, end: 20200815
  35. PREDNISONE. [Concomitant]
     Active Substance: PREDNISONE
     Indication: RENAL TRANSPLANT
     Dosage: UNK, UNKNOWN FREQ.
     Route: 048
     Dates: start: 202007
  36. PREDNISONE. [Concomitant]
     Active Substance: PREDNISONE
     Indication: LIVER TRANSPLANT
     Dosage: 80 MG, ONCE DAILY (DAY 3)
     Route: 048
     Dates: start: 20200724
  37. ESOMEPRAZOLE. [Concomitant]
     Active Substance: ESOMEPRAZOLE MAGNESIUM
     Indication: PRODUCT USED FOR UNKNOWN INDICATION
     Dosage: UNK UNK, UNKNOWN FREQ.
     Route: 065
  38. PIPERACILLIN AND TAZOBACTAM [Concomitant]
     Active Substance: PIPERACILLIN SODIUM\TAZOBACTAM SODIUM
     Indication: PRODUCT USED FOR UNKNOWN INDICATION
     Dosage: UNK UNK, UNKNOWN FREQ.
     Route: 042
  39. MODIGRAF [Suspect]
     Active Substance: TACROLIMUS
     Dosage: 5.4 MG, ONCE DAILY (DAY 12)
     Route: 048
     Dates: start: 20200802, end: 20200802
  40. MODIGRAF [Suspect]
     Active Substance: TACROLIMUS
     Dosage: 12 MG, ONCE DAILY (DAY 15)
     Route: 048
     Dates: start: 20200805, end: 20200805
  41. MODIGRAF [Suspect]
     Active Substance: TACROLIMUS
     Dosage: 12 MG, ONCE DAILY (DAY 19)
     Route: 048
     Dates: start: 20200809, end: 20200809
  42. MODIGRAF [Suspect]
     Active Substance: TACROLIMUS
     Dosage: 10 MG, ONCE DAILY (DAY 23)
     Route: 048
     Dates: start: 20200813, end: 20200813
  43. MODIGRAF [Suspect]
     Active Substance: TACROLIMUS
     Dosage: 6 MG, ONCE DAILY (DAY 13)
     Route: 048
     Dates: start: 20200803, end: 20200803
  44. MODIGRAF [Suspect]
     Active Substance: TACROLIMUS
     Dosage: 8 MG, ONCE DAILY (DAY 14)
     Route: 048
     Dates: start: 20200804, end: 20200804
  45. PREDNISONE. [Concomitant]
     Active Substance: PREDNISONE
     Dosage: UNK UNK, UNKNOWN FREQ.
     Route: 048
     Dates: end: 20200808
  46. CELLCEPT [Concomitant]
     Active Substance: MYCOPHENOLATE MOFETIL\MYCOPHENOLATE MOFETIL HYDROCHLORIDE
     Indication: LIVER TRANSPLANT
  47. OXAZEPAM. [Concomitant]
     Active Substance: OXAZEPAM
     Indication: PRODUCT USED FOR UNKNOWN INDICATION
     Dosage: UNK UNK, AS NEEDED
     Route: 065

REACTIONS (13)
  - Hypertension [Unknown]
  - Tremor [Recovering/Resolving]
  - Therapeutic drug monitoring analysis incorrectly performed [Unknown]
  - Thrombotic microangiopathy [Unknown]
  - Wrong technique in product usage process [Unknown]
  - Renal tubular necrosis [Unknown]
  - Nephropathy toxic [Unknown]
  - Neurotoxicity [Unknown]
  - Acute kidney injury [Recovered/Resolved]
  - Hyperglycaemia [Unknown]
  - Biloma infected [Unknown]
  - Toxicity to various agents [Unknown]
  - Toxicity to various agents [Unknown]

NARRATIVE: CASE EVENT DATE: 20200722
